FAERS Safety Report 8320272-0 (Version None)
Quarter: 2012Q2

REPORT INFORMATION
  Report Type: 
  Country: None (occurrence: None)
  Receive Date: 20120426
  Receipt Date: 20120426
  Transmission Date: 20120825
  Serious: Yes (Other)
  Sender: FDA-Public Use
  Company Number: None

PATIENT
  Sex: Female

DRUGS (1)
  1. BOTOX [Suspect]
     Dosage: 100 UNITS Q4MTHS IM
     Route: 030
     Dates: start: 20120318

REACTIONS (4)
  - EYE DISCHARGE [None]
  - VISION BLURRED [None]
  - EYE SWELLING [None]
  - HYPOAESTHESIA EYE [None]
